FAERS Safety Report 7674126-3 (Version None)
Quarter: 2011Q3

REPORT INFORMATION
  Report Type: 
  Country: None (occurrence: None)
  Receive Date: 20110810
  Receipt Date: 20110802
  Transmission Date: 20111222
  Serious: Yes (Other)
  Sender: FDA-Public Use
  Company Number: US-BAYER-201041737NA

PATIENT
  Age: 50 Year
  Sex: Male
  Weight: 91 kg

DRUGS (14)
  1. ADVIL LIQUI-GELS [Concomitant]
     Indication: PRODUCT USED FOR UNKNOWN INDICATION
     Dosage: AS NEEDED
  2. TRASYLOL [Suspect]
     Indication: HEART TRANSPLANT
     Route: 042
     Dates: start: 20001208
  3. CALCIUM CARBONATE [Concomitant]
     Indication: SELF-MEDICATION
     Dosage: DAILY
  4. TRASYLOL [Suspect]
     Indication: VENTRICULAR ASSIST DEVICE INSERTION
  5. MOTRIN [Concomitant]
     Indication: PRODUCT USED FOR UNKNOWN INDICATION
     Dosage: AS NEEDED
  6. PREVACID [Concomitant]
     Indication: SELF-MEDICATION
     Dosage: AS NEEDED
  7. ACETYLSALICYLIC ACID SRT [Concomitant]
     Indication: SELF-MEDICATION
     Dosage: DAILY
  8. IBUPROFEN [Concomitant]
     Indication: PRODUCT USED FOR UNKNOWN INDICATION
     Dosage: AS NEEDED
  9. LASIX [Concomitant]
     Indication: FLUID RETENTION
  10. BUMEX [Concomitant]
     Dosage: 1 MG, BID
     Route: 048
  11. MONOPRIL [Concomitant]
     Dosage: 20 MG, BID
     Route: 048
  12. HUMALOG [Concomitant]
     Indication: PRODUCT USED FOR UNKNOWN INDICATION
     Dosage: DAILY
  13. LABETALOL HCL [Concomitant]
     Indication: PRODUCT USED FOR UNKNOWN INDICATION
     Dosage: DAILY
  14. BUMEX [Concomitant]
     Indication: FLUID RETENTION
     Dosage: DAILY

REACTIONS (11)
  - UNEVALUABLE EVENT [None]
  - EMOTIONAL DISTRESS [None]
  - INJURY [None]
  - RENAL INJURY [None]
  - CARDIAC DISORDER [None]
  - ANXIETY [None]
  - PAIN [None]
  - RENAL IMPAIRMENT [None]
  - STRESS [None]
  - FEAR [None]
  - RENAL FAILURE [None]
